FAERS Safety Report 25382427 (Version 3)
Quarter: 2025Q3

REPORT INFORMATION
  Report Type: Report from Study
  Country: US (occurrence: US)
  Receive Date: 20250601
  Receipt Date: 20250803
  Transmission Date: 20251020
  Serious: Yes (Other)
  Sender: ALEXION PHARMACEUTICALS
  Company Number: US-AstraZeneca-CH-00879518A

PATIENT
  Sex: Male

DRUGS (3)
  1. SOLIRIS [Suspect]
     Active Substance: ECULIZUMAB
     Route: 065
  2. ULTOMIRIS [Suspect]
     Active Substance: RAVULIZUMAB-CWVZ
     Route: 065
  3. RYSTIGGO [Concomitant]
     Active Substance: ROZANOLIXIZUMAB-NOLI
     Route: 065

REACTIONS (3)
  - Neoplasm malignant [Unknown]
  - Drug ineffective [Unknown]
  - Symptom recurrence [Unknown]
